FAERS Safety Report 7722442-9 (Version None)
Quarter: 2011Q3

REPORT INFORMATION
  Report Type: 
  Country: None (occurrence: None)
  Receive Date: 20110831
  Receipt Date: 20110819
  Transmission Date: 20111222
  Serious: Yes (Disabling)
  Sender: FDA-Public Use
  Company Number: US-BAYER-200943504NA

PATIENT
  Sex: Male

DRUGS (2)
  1. CIPROFLOXACIN [Suspect]
     Dosage: 1000 MG (DAILY DOSE), ,
     Dates: start: 20090801
  2. CIPROFLOXACIN [Suspect]
     Indication: PROSTATITIS
     Dosage: 1 DF, BID
     Dates: start: 20091015, end: 20091020

REACTIONS (8)
  - ABASIA [None]
  - TINNITUS [None]
  - EYE PAIN [None]
  - PARALYSIS [None]
  - TENDON PAIN [None]
  - MOBILITY DECREASED [None]
  - PAIN IN EXTREMITY [None]
  - ANXIETY [None]
